FAERS Safety Report 6815409-6 (Version None)
Quarter: 2010Q3

REPORT INFORMATION
  Report Type: 
  Country: None (occurrence: None)
  Receive Date: 20100702
  Receipt Date: 20100624
  Transmission Date: 20110219
  Serious: Yes (Hospitalization)
  Sender: FDA-Public Use
  Company Number: US-SANOFI-AVENTIS-2010SA037200

PATIENT
  Sex: Male

DRUGS (2)
  1. PLAVIX [Suspect]
     Indication: MYOCARDIAL INFARCTION
     Route: 065
     Dates: end: 20100601
  2. ASPIRIN [Suspect]
     Indication: MYOCARDIAL INFARCTION
     Route: 065

REACTIONS (2)
  - BLOOD URINE PRESENT [None]
  - PULMONARY EMBOLISM [None]
